FAERS Safety Report 12258014 (Version 1)
Quarter: 2016Q2

REPORT INFORMATION
  Report Type: Spontaneous
  Country: US (occurrence: US)
  Receive Date: 20160412
  Receipt Date: 20160412
  Transmission Date: 20160815
  Serious: Yes (Other)
  Sender: FDA-Public Use
  Company Number: US-BAYER-2016-064434

PATIENT
  Age: 69 Year
  Sex: Female

DRUGS (1)
  1. ALEVE [Suspect]
     Active Substance: NAPROXEN SODIUM
     Indication: ANALGESIC THERAPY
     Dosage: 2 DF, PRN
     Route: 048
     Dates: start: 20160330, end: 20160331

REACTIONS (11)
  - Feeling cold [Recovered/Resolved]
  - Product use issue [None]
  - Vomiting [Recovered/Resolved]
  - Somnolence [None]
  - Loss of consciousness [Recovered/Resolved]
  - Pallor [Recovered/Resolved]
  - Glassy eyes [Recovered/Resolved]
  - Asthenia [Recovered/Resolved]
  - Nausea [Recovered/Resolved]
  - Hot flush [Recovered/Resolved]
  - Presyncope [Recovered/Resolved]

NARRATIVE: CASE EVENT DATE: 20160331
